FAERS Safety Report 17350680 (Version 3)
Quarter: 2020Q2

REPORT INFORMATION
  Report Type: Report from Study
  Country: US (occurrence: US)
  Receive Date: 20200130
  Receipt Date: 20200406
  Transmission Date: 20200713
  Serious: Yes (Other)
  Sender: FDA-Public Use
  Company Number: US-ROCHE-2532392

PATIENT
  Sex: Female
  Weight: 90.8 kg

DRUGS (1)
  1. OCREVUS [Suspect]
     Active Substance: OCRELIZUMAB
     Indication: RELAPSING MULTIPLE SCLEROSIS
     Dosage: 27/FEB/2018, 07/MAR/2019, 23/JUL/2019, 12/AUG/2019
     Route: 042
     Dates: start: 201708

REACTIONS (1)
  - Urinary tract infection [Recovered/Resolved]
